FAERS Safety Report 24048659 (Version 4)
Quarter: 2024Q3

REPORT INFORMATION
  Report Type: Report from Study
  Country: US (occurrence: US)
  Receive Date: 20240704
  Receipt Date: 20240820
  Transmission Date: 20241017
  Serious: Yes (Hospitalization, Other)
  Sender: DECIPHERA PHARMACEUTICALS
  Company Number: US-DECIPHERA PHARMACEUTICALS LLC-2024US000539

PATIENT
  Age: 51 Year
  Sex: Female

DRUGS (2)
  1. QINLOCK [Suspect]
     Active Substance: RIPRETINIB
     Indication: Gastrointestinal stromal tumour
     Dosage: 150 MILLIGRAM, QD
     Route: 048
     Dates: start: 20240515, end: 2024
  2. QINLOCK [Suspect]
     Active Substance: RIPRETINIB
     Dosage: 150 MILLIGRAM, QD
     Route: 048
     Dates: start: 2024, end: 2024

REACTIONS (18)
  - Haematemesis [Unknown]
  - Haematochezia [Unknown]
  - Haemoglobin decreased [Unknown]
  - Delirium [Unknown]
  - Abdominal pain upper [Unknown]
  - Paraesthesia [Unknown]
  - Neoplasm progression [Unknown]
  - Fall [Unknown]
  - Blood pressure decreased [Unknown]
  - Rash [Unknown]
  - Decreased appetite [Unknown]
  - Alopecia [Not Recovered/Not Resolved]
  - Dry skin [Unknown]
  - Vomiting [Unknown]
  - Skin burning sensation [Unknown]
  - Weight decreased [Unknown]
  - Drug ineffective [Unknown]
  - Product dose omission in error [Unknown]

NARRATIVE: CASE EVENT DATE: 20240101
